FAERS Safety Report 5299700-3 (Version None)
Quarter: 2007Q2

REPORT INFORMATION
  Report Type: 
  Country: None (occurrence: None)
  Receive Date: 20070410
  Receipt Date: 20070329
  Transmission Date: 20071010
  Serious: Yes (Hospitalization, Disabling)
  Sender: FDA-Public Use
  Company Number: GXKR2007DE03046

PATIENT
  Age: 30 Year
  Sex: Male
  Weight: 112 kg

DRUGS (2)
  1. CLOZAPINE [Suspect]
     Indication: SCHIZOPHRENIA, PARANOID TYPE
     Dosage: SEE IMAGE
  2. CLOMIPRAMINE HCL [Concomitant]

REACTIONS (2)
  - DRUG INEFFECTIVE [None]
  - OBSESSIVE-COMPULSIVE DISORDER [None]
